FAERS Safety Report 10790311 (Version 1)
Quarter: 2015Q1

REPORT INFORMATION
  Report Type: Spontaneous
  Country: GB (occurrence: GB)
  Receive Date: 20150212
  Receipt Date: 20150212
  Transmission Date: 20150721
  Serious: Yes (Other)
  Sender: FDA-Public Use
  Company Number: GB-SA-2015SA015079

PATIENT
  Sex: Male

DRUGS (9)
  1. APREPITANT. [Concomitant]
     Active Substance: APREPITANT
     Dates: start: 20141128
  2. FOLINIC ACID [Concomitant]
     Active Substance: LEUCOVORIN
     Dosage: OXMDG REGIME
  3. OXALIPLATIN. [Suspect]
     Active Substance: OXALIPLATIN
     Indication: COLORECTAL CANCER
     Dosage: DOSE REDUCED
     Route: 042
  4. FLUOROURACIL. [Suspect]
     Active Substance: FLUOROURACIL
     Indication: COLORECTAL CANCER
     Dosage: OXMDG REGIME, BOLUS SYRINGE
     Route: 040
     Dates: start: 20141222, end: 20141222
  5. FLUOROURACIL. [Suspect]
     Active Substance: FLUOROURACIL
     Indication: COLORECTAL CANCER
     Dosage: OXMDG REGIME, IN LV5 PUMP 3800MG OVER 46 HOURS?FREQ: 1 EVERY 46 HOURS
     Route: 042
  6. SODIUM CHLORIDE. [Suspect]
     Active Substance: SODIUM CHLORIDE
     Dosage: 0.9%
     Route: 065
     Dates: start: 20141222
  7. APREPITANT. [Concomitant]
     Active Substance: APREPITANT
     Dates: start: 20141126, end: 20141126
  8. OXALIPLATIN. [Suspect]
     Active Substance: OXALIPLATIN
     Indication: COLORECTAL CANCER
     Dosage: OXMDG REGIME, REDUCED ON AN UNKNOWN DATE
     Route: 042
     Dates: start: 20141222, end: 20141222
  9. RANITIDINE [Concomitant]
     Active Substance: RANITIDINE\RANITIDINE HYDROCHLORIDE
     Route: 048

REACTIONS (6)
  - Mood swings [Not Recovered/Not Resolved]
  - Neuropathy peripheral [Not Recovered/Not Resolved]
  - Cough [Not Recovered/Not Resolved]
  - Incorrect drug administration rate [Unknown]
  - Malaise [Not Recovered/Not Resolved]
  - Fatigue [Not Recovered/Not Resolved]

NARRATIVE: CASE EVENT DATE: 201411
